FAERS Safety Report 22244776 (Version 2)
Quarter: 2023Q2

REPORT INFORMATION
  Report Type: Report from Study
  Country: MX (occurrence: MX)
  Receive Date: 20230424
  Receipt Date: 20230623
  Transmission Date: 20230721
  Serious: Yes (Other)
  Sender: FDA-Public Use
  Company Number: MX-002147023-NVSC2023MX090028

PATIENT
  Age: 73 Year
  Sex: Male

DRUGS (5)
  1. ENTRESTO [Suspect]
     Active Substance: SACUBITRIL\VALSARTAN
     Indication: Cardiac failure
     Dosage: 0.5 DOSAGE FORM, BID, (50 MG), (IN THE MORNING AND AT NIGHT)
     Route: 048
     Dates: start: 20221206
  2. ENTRESTO [Suspect]
     Active Substance: SACUBITRIL\VALSARTAN
     Indication: Infarction
     Dosage: 1 DOSAGE FORM, QD (50 MG)
     Route: 048
  3. ENTRESTO [Suspect]
     Active Substance: SACUBITRIL\VALSARTAN
     Dosage: 0.5 DOSAGE FORM, QD
     Route: 065
  4. XARELTO [Concomitant]
     Active Substance: RIVAROXABAN
     Indication: Thrombosis
     Dosage: 1 DOSAGE FORM, QD
     Route: 048
     Dates: start: 20221206
  5. KEFLEX [Concomitant]
     Active Substance: CEPHALEXIN
     Indication: Infection
     Dosage: 1 DOSAGE FORM, BID
     Route: 048
     Dates: start: 20221207, end: 20221217

REACTIONS (7)
  - Postoperative wound infection [Recovering/Resolving]
  - Decreased immune responsiveness [Unknown]
  - COVID-19 [Recovered/Resolved]
  - Blood pressure decreased [Recovering/Resolving]
  - Prescribed underdose [Unknown]
  - Wrong technique in product usage process [Unknown]
  - Off label use [Unknown]

NARRATIVE: CASE EVENT DATE: 20221206
